FAERS Safety Report 8445202-2 (Version None)
Quarter: 2012Q2

REPORT INFORMATION
  Report Type: 
  Country: None (occurrence: None)
  Receive Date: 20120618
  Receipt Date: 20120604
  Transmission Date: 20120825
  Serious: Yes (Other)
  Sender: FDA-Public Use
  Company Number: US-ROCHE-742338

PATIENT

DRUGS (3)
  1. CARBOPLATIN [Suspect]
     Indication: NON-SMALL CELL LUNG CANCER
     Dosage: AUC 6
     Route: 042
  2. BORTEZOMIB AND BORTEZOMIB [Suspect]
     Indication: NON-SMALL CELL LUNG CANCER
     Dosage: 1.3, 1.6 AND 1.8 MG/SQUARE METER WEEKLY ON DAY 1 AND DAY 8 OF EVERY 3 WEEK CYCLE
     Route: 042
  3. AVASTIN [Suspect]
     Indication: NON-SMALL CELL LUNG CANCER
     Route: 042

REACTIONS (19)
  - DIARRHOEA [None]
  - VOMITING [None]
  - INFECTION [None]
  - ARTERIAL THROMBOSIS [None]
  - FATIGUE [None]
  - THROMBOCYTOPENIA [None]
  - DYSPNOEA [None]
  - NAUSEA [None]
  - DEHYDRATION [None]
  - CONFUSIONAL STATE [None]
  - LYMPHOPENIA [None]
  - PAIN [None]
  - NEUTROPENIA [None]
  - DECREASED APPETITE [None]
  - ANAEMIA [None]
  - HYPONATRAEMIA [None]
  - HYPERTENSION [None]
  - PULMONARY HAEMORRHAGE [None]
  - THROMBOSIS [None]
